FAERS Safety Report 5153338-7 (Version None)
Quarter: 2006Q4

REPORT INFORMATION
  Report Type: 
  Country: None (occurrence: None)
  Receive Date: 20061117
  Receipt Date: 20061115
  Transmission Date: 20070319
  Serious: Yes (Other)
  Sender: FDA-Public Use
  Company Number: IT-BRISTOL-MYERS SQUIBB COMPANY-13580477

PATIENT
  Age: 50 Year
  Sex: Female

DRUGS (3)
  1. TAXOL [Suspect]
     Indication: OVARIAN CANCER
     Route: 042
     Dates: start: 20061114, end: 20061114
  2. CORTISONE ACETATE [Concomitant]
  3. ANTIHISTAMINE DRUGS [Concomitant]

REACTIONS (4)
  - ANORECTAL DISORDER [None]
  - DYSPNOEA [None]
  - PULMONARY OEDEMA [None]
  - URTICARIA [None]
